FAERS Safety Report 9917004 (Version 2)
Quarter: 2014Q1

REPORT INFORMATION
  Report Type: Spontaneous
  Country: US (occurrence: US)
  Receive Date: 20140221
  Receipt Date: 20140221
  Transmission Date: 20141002
  Serious: Yes (Hospitalization)
  Sender: FDA-Public Use
  Company Number: US-GLAXOSMITHKLINE-A0833450A

PATIENT
  Age: 51 Year
  Sex: Female
  Weight: 87.3 kg

DRUGS (1)
  1. ROSIGLITAZONE [Suspect]
     Indication: TYPE 2 DIABETES MELLITUS
     Route: 048

REACTIONS (2)
  - Myocardial infarction [Not Recovered/Not Resolved]
  - Cerebrovascular accident [Unknown]
